FAERS Safety Report 4629410-4 (Version None)
Quarter: 2005Q2

REPORT INFORMATION
  Report Type: 
  Country: None (occurrence: None)
  Receive Date: 20050405
  Receipt Date: 20050322
  Transmission Date: 20051028
  Serious: Yes (Hospitalization)
  Sender: FDA-Public Use
  Company Number: DSA_26035_2005

PATIENT
  Age: 76 Year
  Sex: Female

DRUGS (4)
  1. DILTIAZEM [Suspect]
     Indication: ANGINA PECTORIS
     Dosage: 2 U Q DAY PO
     Route: 048
     Dates: start: 20041015, end: 20041203
  2. KARDEGIC [Suspect]
     Indication: ANGINA PECTORIS
     Dosage: 75 MG Q DAY PO
     Route: 048
     Dates: start: 20041015, end: 20041203
  3. ELISOR [Suspect]
     Indication: HYPERCHOLESTEROLAEMIA
     Dosage: 20 MG Q DAY PO
     Route: 048
     Dates: start: 20041015, end: 20041208
  4. AMOXICILLIN [Concomitant]

REACTIONS (4)
  - DERMATITIS BULLOUS [None]
  - OCULAR HYPERAEMIA [None]
  - PURPURA [None]
  - RASH ERYTHEMATOUS [None]
